FAERS Safety Report 9577280 (Version 1)
Quarter: 2013Q4

REPORT INFORMATION
  Report Type: Spontaneous
  Country: US (occurrence: US)
  Receive Date: 20131001
  Receipt Date: 20131001
  Transmission Date: 20140711
  Serious: No
  Sender: FDA-Public Use
  Company Number: US-AMGEN-USASP2013007407

PATIENT
  Sex: Female
  Weight: 75.28 kg

DRUGS (16)
  1. ENBREL [Suspect]
     Indication: RHEUMATOID ARTHRITIS
     Dosage: 50 MG, QWK
     Route: 058
  2. BONIVA [Concomitant]
     Dosage: 3 MG/3ML
  3. PLAQUENIL                          /00072602/ [Concomitant]
     Dosage: 200 MG, UNK
  4. PREDNISONE [Concomitant]
     Dosage: 1 MG, UNK
  5. LEFLUNOMID [Concomitant]
     Dosage: 10 MG, UNK
  6. GABAPENTIN [Concomitant]
     Dosage: 100 MG, UNK
  7. AZITROMICIN [Concomitant]
     Dosage: 250 MG, UNK
  8. HYDROCHLOROTH [Concomitant]
     Dosage: 12.5 MG, UNK
  9. DILTIAZEM [Concomitant]
     Dosage: 120 MG, UNK
  10. DALIRESP [Concomitant]
     Dosage: 500 MUG, UNK
  11. SPIRIVA [Concomitant]
     Dosage: UNK
  12. MONTELUKAST [Concomitant]
     Dosage: 10 MG, UNK
  13. PROAIR HFA [Concomitant]
     Dosage: UNK
  14. MULTIVITAMINS, PLAIN [Concomitant]
     Dosage: UNK
  15. FOLIC ACID [Concomitant]
     Dosage: UNK
  16. RANEXA [Concomitant]
     Dosage: 500 MG, UNK

REACTIONS (5)
  - Visual impairment [Unknown]
  - Muscular weakness [Unknown]
  - Dizziness [Unknown]
  - Blood pressure decreased [Unknown]
  - Paraesthesia [Unknown]
